FAERS Safety Report 7883006-X (Version None)
Quarter: 2011Q4

REPORT INFORMATION
  Report Type: 
  Country: None (occurrence: None)
  Receive Date: 20111102
  Receipt Date: 20111020
  Transmission Date: 20120403
  Serious: Yes (Death, Other)
  Sender: FDA-Public Use
  Company Number: GB-RANBAXY-2011R1-47740

PATIENT
  Age: 20 Year
  Sex: Male

DRUGS (5)
  1. ERYTHROMYCIN [Interacting]
     Indication: SUICIDE ATTEMPT
     Dosage: UNK
     Route: 048
  2. AMOXICILLIN [Suspect]
     Indication: SUICIDE ATTEMPT
     Dosage: UNK
     Route: 048
  3. FERROUS SULFATE TAB [Interacting]
     Indication: SUICIDE ATTEMPT
     Dosage: UNK
     Route: 048
  4. LOPERAMIDE HCL [Interacting]
     Indication: SUICIDE ATTEMPT
     Dosage: UNK
     Route: 048
  5. ACETAMINOPHEN [Interacting]
     Indication: SUICIDE ATTEMPT
     Dosage: UNK
     Route: 048

REACTIONS (15)
  - LIVER INJURY [None]
  - AMMONIA INCREASED [None]
  - BRAIN HERNIATION [None]
  - INTRACRANIAL PRESSURE INCREASED [None]
  - COMPLETED SUICIDE [None]
  - MULTIPLE DRUG OVERDOSE [None]
  - ACUTE HEPATIC FAILURE [None]
  - BRAIN OEDEMA [None]
  - CHOLESTASIS [None]
  - TOXICITY TO VARIOUS AGENTS [None]
  - SEPSIS [None]
  - INTENTIONAL OVERDOSE [None]
  - DRUG INTERACTION [None]
  - HEPATIC NECROSIS [None]
  - MULTIPLE DRUG OVERDOSE INTENTIONAL [None]
